FAERS Safety Report 5925557-0 (Version None)
Quarter: 2008Q4

REPORT INFORMATION
  Report Type: 
  Country: None (occurrence: None)
  Receive Date: 20081021
  Receipt Date: 20081009
  Transmission Date: 20090506
  Serious: Yes (Hospitalization)
  Sender: FDA-Public Use
  Company Number: FR-ROCHE-590804

PATIENT
  Sex: Male

DRUGS (3)
  1. CELLCEPT [Suspect]
     Route: 065
     Dates: start: 20070917
  2. CELLCEPT [Suspect]
     Route: 065
  3. CELLCEPT [Suspect]
     Dosage: DOSAGE: 250 MG X 2
     Route: 065
     Dates: start: 20081003

REACTIONS (3)
  - DIARRHOEA [None]
  - GENERAL PHYSICAL HEALTH DETERIORATION [None]
  - LYMPHOMA [None]
